FAERS Safety Report 23876983 (Version 1)
Quarter: 2024Q2

REPORT INFORMATION
  Report Type: Spontaneous
  Country: US (occurrence: US)
  Receive Date: 20240521
  Receipt Date: 20240521
  Transmission Date: 20240715
  Serious: No
  Sender: FDA-Public Use
  Company Number: US-ELI_LILLY_AND_COMPANY-US202405009419

PATIENT
  Age: 76 Year
  Sex: Female

DRUGS (8)
  1. ZEPBOUND [Suspect]
     Active Substance: TIRZEPATIDE
     Indication: Weight control
     Dosage: 15 MG, UNKNOWN
     Route: 065
  2. ZEPBOUND [Suspect]
     Active Substance: TIRZEPATIDE
     Indication: Weight control
     Dosage: 15 MG, UNKNOWN
     Route: 065
  3. ZEPBOUND [Suspect]
     Active Substance: TIRZEPATIDE
     Indication: Weight control
     Dosage: 15 MG, UNKNOWN
     Route: 065
  4. ZEPBOUND [Suspect]
     Active Substance: TIRZEPATIDE
     Indication: Weight control
     Dosage: 15 MG, UNKNOWN
     Route: 065
  5. ZEPBOUND [Suspect]
     Active Substance: TIRZEPATIDE
     Indication: Heart rate irregular
  6. ZEPBOUND [Suspect]
     Active Substance: TIRZEPATIDE
     Indication: Heart rate irregular
  7. ZEPBOUND [Suspect]
     Active Substance: TIRZEPATIDE
     Indication: Heart rate irregular
  8. ZEPBOUND [Suspect]
     Active Substance: TIRZEPATIDE
     Indication: Heart rate irregular

REACTIONS (5)
  - Hunger [Unknown]
  - Salt craving [Unknown]
  - Food craving [Unknown]
  - Abdominal pain upper [Unknown]
  - Injection site reaction [Unknown]
